FAERS Safety Report 7421537-7 (Version None)
Quarter: 2011Q2

REPORT INFORMATION
  Report Type: 
  Country: None (occurrence: None)
  Receive Date: 20110418
  Receipt Date: 20110411
  Transmission Date: 20111010
  Serious: Yes (Other)
  Sender: FDA-Public Use
  Company Number: JP-EISAI INC-E2090-01566-SPO-JP

PATIENT
  Age: 69 Year
  Sex: Female

DRUGS (1)
  1. EXCEGRAN [Suspect]
     Dosage: UNKNOWN
     Route: 048
     Dates: start: 20110201, end: 20110301

REACTIONS (1)
  - TOXIC EPIDERMAL NECROLYSIS [None]
